FAERS Safety Report 9209105 (Version 1)
Quarter: 2013Q2

REPORT INFORMATION
  Report Type: Spontaneous
  Country: US (occurrence: US)
  Receive Date: 20130404
  Receipt Date: 20130404
  Transmission Date: 20140414
  Serious: Yes (Other)
  Sender: FDA-Public Use
  Company Number: PHEH2013US007527

PATIENT
  Sex: Female

DRUGS (4)
  1. DIOVAN [Suspect]
     Dosage: 160 MG, QD (ONCE DAILY)
  2. SPIRIVA [Concomitant]
     Dosage: UNK UKN, UNK
  3. ADVAIR [Concomitant]
     Dosage: UNK UKN, UNK
  4. OXAZEPAM [Concomitant]
     Dosage: UNK UKN, UNK

REACTIONS (1)
  - Chronic obstructive pulmonary disease [Unknown]
